FAERS Safety Report 13029771 (Version 5)
Quarter: 2017Q1

REPORT INFORMATION
  Report Type: Report from Study
  Country: JP (occurrence: JP)
  Receive Date: 20161215
  Receipt Date: 20170221
  Transmission Date: 20170428
  Serious: Yes (Hospitalization)
  Sender: FDA-Public Use
  Company Number: JP-ROCHE-1866387

PATIENT
  Age: 72 Year
  Sex: Male
  Weight: 61.8 kg

DRUGS (36)
  1. OLMETEC [Concomitant]
     Active Substance: OLMESARTAN MEDOXOMIL
     Indication: HYPERTENSION
     Route: 065
     Dates: start: 2006, end: 20161226
  2. BAYASPIRIN [Concomitant]
     Active Substance: ASPIRIN
     Indication: CEREBRAL INFARCTION
     Route: 065
     Dates: start: 2006
  3. GRANISETRON [Concomitant]
     Active Substance: GRANISETRON
     Indication: PREMEDICATION
     Route: 065
     Dates: start: 20161129, end: 20161129
  4. MAINTATE [Concomitant]
     Active Substance: BISOPROLOL FUMARATE
     Indication: HYPERTENSION
     Route: 065
     Dates: start: 20161227
  5. NOVAMIN (JAPAN) [Concomitant]
     Indication: NAUSEA
     Route: 065
     Dates: start: 20170125
  6. LIPITOR [Concomitant]
     Active Substance: ATORVASTATIN CALCIUM
     Indication: HYPERLIPIDAEMIA
     Route: 065
     Dates: start: 20170202
  7. PAROXETINE. [Concomitant]
     Active Substance: PAROXETINE
     Indication: CEREBRAL INFARCTION
     Route: 065
     Dates: start: 2016, end: 20161225
  8. DOMPERIDONE [Concomitant]
     Active Substance: DOMPERIDONE
     Route: 065
     Dates: start: 20170124, end: 20170124
  9. FAMOTIDINE D [Concomitant]
     Active Substance: FAMOTIDINE
     Indication: PROPHYLAXIS
     Route: 065
     Dates: start: 2006
  10. OLMETEC [Concomitant]
     Active Substance: OLMESARTAN MEDOXOMIL
     Route: 065
     Dates: start: 20170112, end: 20170201
  11. ALLOPURINOL. [Concomitant]
     Active Substance: ALLOPURINOL
     Indication: HYPERURICAEMIA
     Route: 065
     Dates: start: 2012
  12. BISOPROLOL FUMARATE. [Concomitant]
     Active Substance: BISOPROLOL FUMARATE
     Indication: HYPERTENSION
     Route: 065
     Dates: start: 20161028, end: 20161226
  13. LOXOPROFEN [Concomitant]
     Active Substance: LOXOPROFEN
     Indication: TUMOUR PAIN
     Route: 065
     Dates: start: 20161111
  14. DOMPERIDONE [Concomitant]
     Active Substance: DOMPERIDONE
     Route: 065
     Dates: start: 20170212
  15. BIOFERMIN R [Concomitant]
     Active Substance: BACILLUS SUBTILIS\LACTOBACILLUS ACIDOPHILUS\STREPTOCOCCUS FAECAIS
     Indication: DIARRHOEA
     Route: 065
     Dates: start: 20170209
  16. PAXIL [Concomitant]
     Active Substance: PAROXETINE HYDROCHLORIDE
     Indication: CEREBRAL INFARCTION
     Route: 065
     Dates: start: 20170112, end: 20170201
  17. PAXIL CR [Concomitant]
     Active Substance: PAROXETINE HYDROCHLORIDE
     Indication: CEREBRAL INFARCTION
     Route: 065
     Dates: start: 20170202
  18. BLOPRESS [Concomitant]
     Active Substance: CANDESARTAN CILEXETIL
     Indication: HYPERTENSION
     Route: 065
     Dates: start: 20170202
  19. DOMPERIDONE [Concomitant]
     Active Substance: DOMPERIDONE
     Indication: NAUSEA
     Route: 065
     Dates: start: 20161202, end: 20161203
  20. IR-RBC-LR [Concomitant]
     Indication: ANAEMIA
     Dosage: IRRADIATED RED BLOOD CELLS, LEUKOCYTES REDUCED (IR-RBC-LR)
     Route: 065
     Dates: start: 20170206, end: 20170206
  21. NAB-PACLITAXEL [Suspect]
     Active Substance: PACLITAXEL
     Indication: NON-SMALL CELL LUNG CANCER STAGE IV
     Dosage: FIRST DOSE AS PER PROTOCOL (DAY 1, 8, AND 15 OF EACH 21-DAY CYCLE FOR 4 OR 6 CYCLES)?MOST RECENT DOS
     Route: 042
     Dates: start: 20161129
  22. DOMPERIDONE [Concomitant]
     Active Substance: DOMPERIDONE
     Route: 065
     Dates: start: 20170114, end: 20170114
  23. ATEZOLIZUMAB [Suspect]
     Active Substance: ATEZOLIZUMAB
     Indication: NON-SMALL CELL LUNG CANCER STAGE IV
     Dosage: MOST RECENT DOSE OF ATEZOLIZUMAB PRIOR TO ONSET: 29/NOV/2016, 13/JAN/2017
     Route: 042
     Dates: start: 20161129
  24. NAB-PACLITAXEL [Suspect]
     Active Substance: PACLITAXEL
     Dosage: DOSE INTERRUPTED
     Route: 042
  25. CRESTOR [Concomitant]
     Active Substance: ROSUVASTATIN CALCIUM
     Indication: HYPERLIPIDAEMIA
     Route: 065
     Dates: start: 20160222, end: 20161225
  26. CRESTOR [Concomitant]
     Active Substance: ROSUVASTATIN CALCIUM
     Route: 065
     Dates: start: 20170112, end: 20170201
  27. VOGLIBOSE [Concomitant]
     Active Substance: VOGLIBOSE
     Indication: DIABETES MELLITUS
     Route: 065
     Dates: start: 2011, end: 20161210
  28. LOPERAMIDE HYDROCHLORIDE. [Concomitant]
     Active Substance: LOPERAMIDE HYDROCHLORIDE
     Indication: DIARRHOEA
     Route: 065
     Dates: start: 20161208, end: 20161213
  29. CARBOPLATIN. [Suspect]
     Active Substance: CARBOPLATIN
     Indication: NON-SMALL CELL LUNG CANCER STAGE IV
     Dosage: INITIAL TARGET AREA UNDER THE CONCENTRATION-CURVE (AUC) OF 6 MG/ML/MIN?MOST RECENT DOSE (595 MG) OF
     Route: 042
     Dates: start: 20161129
  30. LOPERAMIDE HYDROCHLORIDE. [Concomitant]
     Active Substance: LOPERAMIDE HYDROCHLORIDE
     Route: 065
     Dates: start: 20170119
  31. DOMPERIDONE [Concomitant]
     Active Substance: DOMPERIDONE
     Route: 065
     Dates: start: 20170116, end: 20170117
  32. BASEN (JAPAN) [Concomitant]
     Indication: DIABETES MELLITUS
     Route: 065
     Dates: start: 20161228
  33. CARBOPLATIN. [Suspect]
     Active Substance: CARBOPLATIN
     Dosage: DOSE REDUCED
     Route: 042
  34. REBAMIPIDE [Concomitant]
     Active Substance: REBAMIPIDE
     Indication: PROPHYLAXIS
     Route: 065
     Dates: start: 20161111
  35. DOMPERIDONE [Concomitant]
     Active Substance: DOMPERIDONE
     Route: 065
     Dates: start: 20170204, end: 20170204
  36. MIYA-BM [Concomitant]
     Active Substance: CLOSTRIDIUM BUTYRICUM SPORES STRAIN M-55
     Indication: DIARRHOEA
     Dosage: MIYA-BM FINE GRANULES
     Route: 065
     Dates: start: 20170207

REACTIONS (2)
  - Pleural infection [Not Recovered/Not Resolved]
  - Febrile neutropenia [Recovered/Resolved]

NARRATIVE: CASE EVENT DATE: 20161210
